FAERS Safety Report 18064682 (Version 1)
Quarter: 2020Q3

REPORT INFORMATION
  Report Type: Spontaneous
  Country: US (occurrence: US)
  Receive Date: 20200724
  Receipt Date: 20200724
  Transmission Date: 20201103
  Serious: No
  Sender: FDA-Public Use
  Company Number: US-TEVA-2020-US-1804275

PATIENT
  Sex: Female

DRUGS (1)
  1. DIAZEPAM TEVA [Suspect]
     Active Substance: DIAZEPAM
     Dosage: DOSE DURATION: 5 OR 6 OR 7 DAYS
     Route: 065
     Dates: start: 2020

REACTIONS (5)
  - Dysphagia [Recovered/Resolved]
  - Abdominal discomfort [Recovered/Resolved]
  - Lymphadenopathy [Recovered/Resolved]
  - Gluten sensitivity [Recovered/Resolved]
  - Feeling abnormal [Recovered/Resolved]
